FAERS Safety Report 4922028-5 (Version None)
Quarter: 2006Q1

REPORT INFORMATION
  Report Type: 
  Country: None (occurrence: None)
  Receive Date: 20060122
  Receipt Date: 20060122
  Transmission Date: 20060701
  Serious: Yes (Hospitalization)
  Sender: FDA-Public Use
  Company Number: None

PATIENT
  Age: 30 Year
  Sex: Female
  Weight: 83.4619 kg

DRUGS (11)
  1. ZANAFLEX [Suspect]
     Indication: PAIN
     Dosage: 8 MG PO TID CHRONIC
     Route: 048
  2. OXYCONTIN [Suspect]
     Indication: PAIN
     Dosage: 20 MG PO TID
     Route: 048
     Dates: start: 20051118
  3. PHENERGAN [Concomitant]
  4. REGLAN [Concomitant]
  5. ZANAFLEX [Concomitant]
  6. SKELAXIN [Concomitant]
  7. AMBIEN [Concomitant]
  8. LUNESTA [Concomitant]
  9. .. [Concomitant]
  10. NICOTINE [Concomitant]
  11. PERCOCET [Concomitant]

REACTIONS (4)
  - CONFUSIONAL STATE [None]
  - HALLUCINATION [None]
  - HYPOTENSION [None]
  - SEDATION [None]
